FAERS Safety Report 9364070 (Version 1)
Quarter: 2013Q2

REPORT INFORMATION
  Report Type: Spontaneous
  Country: IT (occurrence: None)
  Receive Date: 20130620
  Receipt Date: 20130620
  Transmission Date: 20140414
  Serious: Yes (Disabling)
  Sender: FDA-Public Use
  Company Number: AG-2012-2004

PATIENT
  Age: 32 Year
  Sex: Male

DRUGS (10)
  1. MYLERAN [Suspect]
     Indication: ADJUVANT THERAPY
     Dates: start: 20120113, end: 20120116
  2. ZOFRAN (ONDASETRON) (ENOTRACHEOPULMONARY INSTILLATION POWD+SOLVENT FOR SOLUTIO) [Concomitant]
  3. DINTOINA (PHENYTOIN) [Concomitant]
  4. AMBISOME (AMPHOTERICIN B) INJECTION [Concomitant]
  5. AUGMENTIN (AMOXICILLIN, POTASSIUM) [Concomitant]
  6. NOXAFIL (POSACONAOZOLE) [Concomitant]
  7. ENAPREN (ENALAPRIL) [Concomitant]
  8. ACICLOVIR  (ACICLOVIR) [Concomitant]
  9. FLUDARABINE PHOSPHATE (FLUADRABINE) [Concomitant]
  10. HEPARIN SODIUM (HEPARIN) [Concomitant]

REACTIONS (4)
  - Clonus [None]
  - Muscle spasms [None]
  - Fall [None]
  - Anticonvulsant drug level below therapeutic [None]
